FAERS Safety Report 5246226-9 (Version None)
Quarter: 2007Q1

REPORT INFORMATION
  Report Type: 
  Country: None (occurrence: None)
  Receive Date: 20070221
  Receipt Date: 20070208
  Transmission Date: 20070707
  Serious: Yes (Other)
  Sender: FDA-Public Use
  Company Number: 230007M06CHE

PATIENT
  Sex: Female

DRUGS (3)
  1. REBIF [Suspect]
     Indication: MULTIPLE SCLEROSIS
     Dosage: 44, SUBCUTANEOUS
     Route: 058
     Dates: start: 20060901
  2. ACETAMINOPHEN [Concomitant]
  3. TOLTERODINE TARTRATE [Concomitant]

REACTIONS (1)
  - COLON CANCER [None]
